FAERS Safety Report 6648482-9 (Version None)
Quarter: 2010Q1

REPORT INFORMATION
  Report Type: 
  Country: None (occurrence: None)
  Receive Date: 20100319
  Receipt Date: 20100305
  Transmission Date: 20100710
  Serious: Yes (Other)
  Sender: FDA-Public Use
  Company Number: 2010SCPR000339

PATIENT
  Age: 50 Year
  Sex: Male

DRUGS (7)
  1. HYDRALAZINE HCL [Suspect]
     Indication: MALIGNANT HYPERTENSION
     Dosage: 50 MG, TID, ORAL
     Route: 048
  2. METOPROLOL (METOPROLOL) [Suspect]
     Indication: DRUG USE FOR UNKNOWN INDICATION
     Dosage: ORAL
     Route: 048
     Dates: end: 20100101
  3. CLONIDINE [Suspect]
     Indication: BLOOD PRESSURE
  4. AMLODIPINE [Suspect]
     Indication: BLOOD PRESSURE
  5. LISINOPRIL AND HYDROCHLOROTHIAZIDE [Suspect]
     Indication: BLOOD PRESSURE
  6. CARVEDILOL [Suspect]
     Indication: BLOOD PRESSURE
  7. SIMVASTATIN [Suspect]
     Indication: DRUG USE FOR UNKNOWN INDICATION

REACTIONS (4)
  - BLOOD PRESSURE INCREASED [None]
  - DRUG INEFFECTIVE [None]
  - HEART RATE INCREASED [None]
  - NUCLEAR MAGNETIC RESONANCE IMAGING BRAIN ABNORMAL [None]
